FAERS Safety Report 21973981 (Version 3)
Quarter: 2023Q1

REPORT INFORMATION
  Report Type: Spontaneous
  Country: US (occurrence: None)
  Receive Date: 20230209
  Receipt Date: 20230309
  Transmission Date: 20230418
  Serious: Yes (Other)
  Sender: FDA-Public Use
  Company Number: 2023A029827

PATIENT
  Sex: Female
  Weight: 78.5 kg

DRUGS (43)
  1. NEXIUM [Suspect]
     Active Substance: ESOMEPRAZOLE MAGNESIUM
     Route: 048
     Dates: start: 20110831
  2. NEXIUM [Suspect]
     Active Substance: ESOMEPRAZOLE MAGNESIUM
     Route: 048
     Dates: start: 20111116
  3. NEXIUM [Suspect]
     Active Substance: ESOMEPRAZOLE MAGNESIUM
     Route: 048
  4. METFORMIN [Concomitant]
     Active Substance: METFORMIN HYDROCHLORIDE
  5. HYDROCHLOROTHIAZIDE\LISINOPRIL [Concomitant]
     Active Substance: HYDROCHLOROTHIAZIDE\LISINOPRIL
  6. DIAZEPAM [Concomitant]
     Active Substance: DIAZEPAM
  7. PLAVIX [Concomitant]
     Active Substance: CLOPIDOGREL BISULFATE
  8. MORPHINE SULFATE [Concomitant]
     Active Substance: MORPHINE SULFATE
  9. CLOPIDOGREL [Concomitant]
     Active Substance: CLOPIDOGREL BISULFATE
  10. SIMVASTATIN [Concomitant]
     Active Substance: SIMVASTATIN
  11. VITAMINS [Concomitant]
     Active Substance: VITAMINS
  12. VITAMIN B COMPLEX [Concomitant]
     Active Substance: CYANOCOBALAMIN\DEXPANTHENOL\NIACINAMIDE\PYRIDOXINE HYDROCHLORIDE\RIBOFLAVIN 5^-PHOSPHATE SODIUM\THIA
  13. POLYETHYLENE GLYCOL [Concomitant]
     Active Substance: POLYETHYLENE GLYCOL
  14. LORATADINE [Concomitant]
     Active Substance: LORATADINE
  15. GABAPENTIN [Concomitant]
     Active Substance: GABAPENTIN
  16. ANTACID [Concomitant]
     Active Substance: ALUMINUM HYDROXIDE\CALCIUM CARBONATE\DIMETHICONE\MAGNESIUM HYDROXIDE
  17. DULOXETINE [Concomitant]
     Active Substance: DULOXETINE
  18. GLIMEPIRIDE [Concomitant]
     Active Substance: GLIMEPIRIDE
  19. CYCLOBENZAPRINE [Concomitant]
     Active Substance: CYCLOBENZAPRINE
  20. SUCRALFATE [Concomitant]
     Active Substance: SUCRALFATE
  21. GENERLAC [Concomitant]
     Active Substance: LACTULOSE
  22. AZITHROMYCIN [Concomitant]
     Active Substance: AZITHROMYCIN
  23. FLUTICASONE [Concomitant]
     Active Substance: FLUTICASONE
  24. ISOSORBIDE MONONITRATE [Concomitant]
     Active Substance: ISOSORBIDE MONONITRATE
  25. AMITRIPTYLINE [Concomitant]
     Active Substance: AMITRIPTYLINE
  26. ESCIN/LEVOTHYROXINE [Concomitant]
  27. CLONAZEPAM [Concomitant]
     Active Substance: CLONAZEPAM
  28. ACETAMINOPHEN\HYDROCODONE BITARTRATE [Concomitant]
     Active Substance: ACETAMINOPHEN\HYDROCODONE BITARTRATE
  29. POTASSIUM CHLORIDE [Concomitant]
     Active Substance: POTASSIUM CHLORIDE
  30. QUETIAPINE [Concomitant]
     Active Substance: QUETIAPINE
  31. CARVEDILOL [Concomitant]
     Active Substance: CARVEDILOL
  32. JARDIANCE [Concomitant]
     Active Substance: EMPAGLIFLOZIN
  33. PROMETHAZINE [Concomitant]
     Active Substance: PROMETHAZINE HYDROCHLORIDE
  34. FUROSEMIDE [Concomitant]
     Active Substance: FUROSEMIDE
  35. MOMETASONE [Concomitant]
     Active Substance: MOMETASONE
  36. ATORVASTATIN [Concomitant]
     Active Substance: ATORVASTATIN
  37. BUMETANIDE [Concomitant]
     Active Substance: BUMETANIDE
  38. OXYCODONE [Concomitant]
     Active Substance: OXYCODONE
  39. PENTOXIFYLLINE [Concomitant]
     Active Substance: PENTOXIFYLLINE
  40. SIMETHICONE (DIMETHICONE) [Concomitant]
     Active Substance: DIMETHICONE
  41. PNEUMOVAX 23 [Concomitant]
     Active Substance: PNEUMOCOCCAL VACCINE, POLYVALENT 23
  42. BENZONATATE [Concomitant]
     Active Substance: BENZONATATE
  43. NIACIN [Concomitant]
     Active Substance: NIACIN

REACTIONS (1)
  - Gastric neuroendocrine carcinoma [Unknown]
